FAERS Safety Report 4862615-6 (Version None)
Quarter: 2005Q4

REPORT INFORMATION
  Report Type: 
  Country: None (occurrence: None)
  Receive Date: 20051221
  Receipt Date: 20051007
  Transmission Date: 20060501
  Serious: Yes (Hospitalization)
  Sender: FDA-Public Use
  Company Number: IT-ROCHE-420370

PATIENT
  Age: 60 Year
  Sex: Male

DRUGS (6)
  1. MYCOPHENOLATE MOFETIL [Suspect]
     Indication: RENAL TRANSPLANT
     Route: 048
     Dates: start: 20050808, end: 20050831
  2. MYCOPHENOLATE MOFETIL [Suspect]
     Route: 048
     Dates: start: 20050901, end: 20050901
  3. MYCOPHENOLATE MOFETIL [Suspect]
     Route: 048
     Dates: start: 20050902, end: 20050902
  4. MYCOPHENOLATE MOFETIL [Suspect]
     Route: 048
     Dates: start: 20050903
  5. TACROLIMUS [Suspect]
     Indication: RENAL TRANSPLANT
     Route: 048
     Dates: start: 20050808, end: 20051007
  6. TACROLIMUS [Suspect]
     Route: 048

REACTIONS (4)
  - DRUG INEFFECTIVE [None]
  - KIDNEY TRANSPLANT REJECTION [None]
  - NEPHROPATHY TOXIC [None]
  - RENAL IMPAIRMENT [None]
